FAERS Safety Report 15285518 (Version 1)
Quarter: 2018Q3

REPORT INFORMATION
  Report Type: Spontaneous
  Country: US (occurrence: US)
  Receive Date: 20180801
  Receipt Date: 20180801
  Transmission Date: 20181010
  Serious: Yes (Hospitalization)
  Sender: FDA-Public Use
  Company Number: None

PATIENT
  Age: 79 Year
  Sex: Male
  Weight: 87 kg

DRUGS (18)
  1. POTASSIUM CHLORIDE. [Concomitant]
     Active Substance: POTASSIUM CHLORIDE
  2. MVI W/ MINERALS [Concomitant]
  3. APIXABAN [Suspect]
     Active Substance: APIXABAN
     Indication: ATRIAL FIBRILLATION
     Route: 048
  4. TAMSULOSIN [Concomitant]
     Active Substance: TAMSULOSIN
  5. SODIUM BICARBONATE. [Concomitant]
     Active Substance: SODIUM BICARBONATE
  6. IRON POLYSACCHARIDES [Concomitant]
  7. VITAMIN B12 [Concomitant]
     Active Substance: CYANOCOBALAMIN
  8. PANTOPRAZOLE [Concomitant]
     Active Substance: PANTOPRAZOLE
  9. APIXABAN [Suspect]
     Active Substance: APIXABAN
     Indication: DEEP VEIN THROMBOSIS
     Route: 048
  10. RANOLAZINE. [Concomitant]
     Active Substance: RANOLAZINE
  11. CARVEDILOL. [Concomitant]
     Active Substance: CARVEDILOL
  12. CALCITRIOL. [Concomitant]
     Active Substance: CALCITRIOL
  13. ATORVASTATIN [Concomitant]
     Active Substance: ATORVASTATIN
  14. LEVOTHYROXINE. [Concomitant]
     Active Substance: LEVOTHYROXINE
  15. METOLAZONE. [Concomitant]
     Active Substance: METOLAZONE
  16. FUROSEMIDE. [Concomitant]
     Active Substance: FUROSEMIDE
  17. FINASTERIDE. [Concomitant]
     Active Substance: FINASTERIDE
  18. CHOLECALCIFEROL [Concomitant]
     Active Substance: CHOLECALCIFEROL

REACTIONS (1)
  - Hypotension [None]

NARRATIVE: CASE EVENT DATE: 20180722
